FAERS Safety Report 24608642 (Version 1)
Quarter: 2024Q4

REPORT INFORMATION
  Report Type: Spontaneous
  Country: US (occurrence: None)
  Receive Date: 20241112
  Receipt Date: 20241112
  Transmission Date: 20250114
  Serious: Yes (Life-Threatening, Disabling)
  Sender: Public
  Company Number: None

PATIENT
  Age: 58 Year
  Sex: Female
  Weight: 76.05 kg

DRUGS (13)
  1. STIOLTO RESPIMAT [Suspect]
     Active Substance: OLODATEROL HYDROCHLORIDE\TIOTROPIUM BROMIDE MONOHYDRATE
     Indication: Chronic obstructive pulmonary disease
     Dosage: OTHER QUANTITY : 2 PUFF(S);?
     Route: 055
     Dates: start: 20210501, end: 20241109
  2. Atrovent inhaler [Concomitant]
  3. ATORVASTATIN [Concomitant]
     Active Substance: ATORVASTATIN
  4. HYDROCHLOROTHIAZIDE [Concomitant]
     Active Substance: HYDROCHLOROTHIAZIDE
  5. LEVOTHYROXINE [Concomitant]
     Active Substance: LEVOTHYROXINE
  6. XARELTO [Concomitant]
     Active Substance: RIVAROXABAN
  7. Amlodapine [Concomitant]
  8. DICLOFENAC [Concomitant]
     Active Substance: DICLOFENAC
  9. Pantoprezole [Concomitant]
  10. BENADRYL [Concomitant]
     Active Substance: DIPHENHYDRAMINE HYDROCHLORIDE
  11. VITAMIN C [Concomitant]
     Active Substance: ASCORBIC ACID
  12. Multivitamin centrum [Concomitant]
  13. VITAMIN D3 [Concomitant]
     Active Substance: CHOLECALCIFEROL

REACTIONS (7)
  - Back pain [None]
  - Rhinorrhoea [None]
  - Cough [None]
  - Insomnia [None]
  - Fatigue [None]
  - Hypertension [None]
  - Heart rate abnormal [None]

NARRATIVE: CASE EVENT DATE: 20210501
